FAERS Safety Report 7806585-7 (Version None)
Quarter: 2011Q4

REPORT INFORMATION
  Report Type: 
  Country: None (occurrence: None)
  Receive Date: 20111007
  Receipt Date: 20111007
  Transmission Date: 20120403
  Serious: Yes (Hospitalization)
  Sender: FDA-Public Use
  Company Number: None

PATIENT

DRUGS (2)
  1. CYCLOPHOSPHAMIDE [Suspect]
     Dosage: 2292 MG
  2. TAXOTERE [Suspect]
     Dosage: 286 MG

REACTIONS (8)
  - ANAEMIA [None]
  - DIARRHOEA [None]
  - SEPSIS [None]
  - POLLAKIURIA [None]
  - ARTHRALGIA [None]
  - ACUTE MYOCARDIAL INFARCTION [None]
  - RENAL FAILURE [None]
  - HYPOMAGNESAEMIA [None]
